FAERS Safety Report 7490227-7 (Version None)
Quarter: 2011Q2

REPORT INFORMATION
  Report Type: 
  Country: None (occurrence: None)
  Receive Date: 20110519
  Receipt Date: 20110503
  Transmission Date: 20111010
  Serious: Yes (Other)
  Sender: FDA-Public Use
  Company Number: US-TYCO HEALTHCARE/MALLINCKRODT-T201100702

PATIENT
  Age: 78 Year
  Sex: Male

DRUGS (5)
  1. FENTANYL-100 [Suspect]
     Indication: MYALGIA
     Dosage: 50 UG/HR, Q 72 HOURS
     Route: 062
     Dates: start: 20110330
  2. GABAPENTIN [Concomitant]
     Indication: NEUROPATHY PERIPHERAL
     Dosage: UNK
  3. LISINOPRIL [Concomitant]
     Indication: HYPERTENSION
     Dosage: UNK
  4. ZOCOR [Concomitant]
     Indication: HYPERCHOLESTEROLAEMIA
     Dosage: UNK
  5. GABAPENTIN [Concomitant]
     Indication: MYALGIA

REACTIONS (3)
  - WITHDRAWAL SYNDROME [None]
  - INAPPROPRIATE SCHEDULE OF DRUG ADMINISTRATION [None]
  - DRUG INEFFECTIVE [None]
